FAERS Safety Report 21491874 (Version 1)
Quarter: 2022Q4

REPORT INFORMATION
  Report Type: Spontaneous
  Country: US (occurrence: None)
  Receive Date: 20221020
  Receipt Date: 20221020
  Transmission Date: 20230112
  Serious: No
  Sender: FDA-Public Use
  Company Number: None

PATIENT
  Age: 50 Year
  Sex: Female

DRUGS (1)
  1. MAVYRET [Suspect]
     Active Substance: GLECAPREVIR\PIBRENTASVIR
     Dosage: OTHER QUANTITY : 300MG + 120MG;?FREQUENCY : DAILY;?
     Route: 048
     Dates: start: 20220901

REACTIONS (2)
  - Tooth infection [None]
  - Tooth extraction [None]

NARRATIVE: CASE EVENT DATE: 20221017
